FAERS Safety Report 17053797 (Version 2)
Quarter: 2019Q4

REPORT INFORMATION
  Report Type: Spontaneous
  Country: US (occurrence: US)
  Receive Date: 20191120
  Receipt Date: 20191203
  Transmission Date: 20200122
  Serious: No
  Sender: FDA-Public Use
  Company Number: US-INCYTE CORPORATION-2019IN011343

PATIENT

DRUGS (1)
  1. JAKAFI [Suspect]
     Active Substance: RUXOLITINIB
     Indication: HODGKIN^S DISEASE
     Dosage: 10 MILLIGRAM, BID
     Route: 048
     Dates: start: 20190801

REACTIONS (4)
  - Graft complication [Unknown]
  - Neutrophil count decreased [Recovering/Resolving]
  - Off label use [Unknown]
  - Blood count abnormal [Recovering/Resolving]
